FAERS Safety Report 16560331 (Version 2)
Quarter: 2019Q3

REPORT INFORMATION
  Report Type: Spontaneous
  Country: US (occurrence: US)
  Receive Date: 20190711
  Receipt Date: 20190730
  Transmission Date: 20191004
  Serious: Yes (Hospitalization, Other)
  Sender: FDA-Public Use
  Company Number: US-PFIZER INC-2019292603

PATIENT
  Age: 74 Year
  Sex: Female
  Weight: 59 kg

DRUGS (8)
  1. EXCEDRIN [Concomitant]
     Active Substance: ACETAMINOPHEN\ASPIRIN\CAFFEINE
     Indication: ARTHRITIS
  2. IBUPROFEN. [Suspect]
     Active Substance: IBUPROFEN
     Indication: ARTHRITIS
     Dosage: 800 MG, DAILY [200MG; FOUR TABLETS BY MOUTH A DAY]
     Route: 048
     Dates: end: 201806
  3. ALEVE [Suspect]
     Active Substance: NAPROXEN SODIUM
     Indication: ARTHRITIS
     Dosage: 4 DF, DAILY [4 TABLETS BY MOUTH A DAY]
     Route: 048
     Dates: end: 201806
  4. ALEVE [Suspect]
     Active Substance: NAPROXEN SODIUM
     Indication: NEUROPATHY PERIPHERAL
  5. IBUPROFEN. [Suspect]
     Active Substance: IBUPROFEN
     Indication: NEUROPATHY PERIPHERAL
  6. EXCEDRIN [Concomitant]
     Active Substance: ACETAMINOPHEN\ASPIRIN\CAFFEINE
     Indication: HEADACHE
     Dosage: AS NEEDED (3 OR 4 DF A WEEK)
     Dates: end: 201806
  7. EXCEDRIN [Concomitant]
     Active Substance: ACETAMINOPHEN\ASPIRIN\CAFFEINE
     Indication: NEUROPATHY PERIPHERAL
  8. LYRICA [Concomitant]
     Active Substance: PREGABALIN
     Dosage: UNK
     Dates: end: 201806

REACTIONS (1)
  - Ulcer haemorrhage [Recovered/Resolved]

NARRATIVE: CASE EVENT DATE: 201806
